FAERS Safety Report 8785420 (Version 6)
Quarter: 2013Q4

REPORT INFORMATION
  Report Type: Report from Study
  Country: DE (occurrence: DE)
  Receive Date: 20120914
  Receipt Date: 20131108
  Transmission Date: 20140711
  Serious: Yes (Life-Threatening, Hospitalization, Disabling)
  Sender: FDA-Public Use
  Company Number: DE-VERTEX PHARMACEUTICAL INC.-000000000000001399

PATIENT
  Age: 59 Year
  Sex: Female
  Weight: 48 kg

DRUGS (6)
  1. VX-950 (TELAPREVIR) [Suspect]
     Indication: HEPATITIS C
     Dosage: 2250 MG, QD
     Route: 048
     Dates: start: 20120430, end: 20120717
  2. PEGINTERFERON ALFA 2A [Suspect]
     Indication: HEPATITIS C
     Dosage: DOSAGE FORM: INJECTION
     Route: 058
     Dates: start: 20120410, end: 20120906
  3. PEGINTERFERON ALFA 2A [Suspect]
     Dosage: DOSAGE FORM: INJECTION
     Route: 058
     Dates: start: 20120410, end: 20120906
  4. RIBAVIRIN [Suspect]
     Indication: HEPATITIS C
     Dosage: 200 MG, QD
     Route: 048
     Dates: start: 20120620, end: 20120906
  5. SILIBININ [Concomitant]
     Indication: CHRONIC HEPATITIS C
     Dosage: UNK
     Route: 042
  6. SILIBININ [Concomitant]
     Dosage: 1.0 MG, QD
     Route: 042

REACTIONS (3)
  - Anaemia [Recovered/Resolved]
  - Haemorrhage intracranial [Recovered/Resolved]
  - Anaemia [Recovered/Resolved]
